FAERS Safety Report 12688814 (Version 1)
Quarter: 2016Q3

REPORT INFORMATION
  Report Type: Spontaneous
  Country: GB (occurrence: GB)
  Receive Date: 20160825
  Receipt Date: 20160825
  Transmission Date: 20161109
  Serious: Yes (Hospitalization)
  Sender: FDA-Public Use
  Company Number: GB-BIOMARINAP-GB-2016-110839

PATIENT
  Sex: Male
  Weight: 30.6 kg

DRUGS (1)
  1. NAGLAZYME [Suspect]
     Active Substance: GALSULFASE
     Indication: MUCOPOLYSACCHARIDOSIS VI
     Dosage: 30 MG, QW
     Route: 042

REACTIONS (3)
  - Seizure [Unknown]
  - Lower respiratory tract infection [Unknown]
  - Cardiac failure [Unknown]
